FAERS Safety Report 9053811 (Version 2)
Quarter: 2013Q2

REPORT INFORMATION
  Report Type: Spontaneous
  Country: US (occurrence: US)
  Receive Date: 20130207
  Receipt Date: 20130510
  Transmission Date: 20140414
  Serious: Yes (Death)
  Sender: FDA-Public Use
  Company Number: US-GLAXOSMITHKLINE-A1010976A

PATIENT
  Age: 96 Year
  Sex: Female

DRUGS (2)
  1. ARIXTRA [Suspect]
     Indication: PRODUCT USED FOR UNKNOWN INDICATION
     Route: 065
     Dates: start: 20120802, end: 20130125
  2. METOPROLOL [Concomitant]

REACTIONS (7)
  - Respiratory failure [Fatal]
  - Pulmonary embolism [Unknown]
  - Dyspnoea [Unknown]
  - Depressed level of consciousness [Unknown]
  - Lethargy [Unknown]
  - Aphasia [Unknown]
  - Pulse absent [Unknown]
